FAERS Safety Report 11239057 (Version 1)
Quarter: 2015Q3

REPORT INFORMATION
  Report Type: Spontaneous
  Country: US (occurrence: None)
  Receive Date: 20150701
  Receipt Date: 20150701
  Transmission Date: 20151125
  Serious: Yes (Disabling)
  Sender: FDA-Public Use
  Company Number: None

PATIENT
  Age: 76 Year
  Sex: Female
  Weight: 78.02 kg

DRUGS (12)
  1. SIMVASTATIN. [Concomitant]
     Active Substance: SIMVASTATIN
  2. TRICOR [Concomitant]
     Active Substance: FENOFIBRATE
  3. FISH OIL [Concomitant]
     Active Substance: FISH OIL
  4. OMEPRAZOLE. [Concomitant]
     Active Substance: OMEPRAZOLE
  5. ESCITALOPRAM [Concomitant]
     Active Substance: ESCITALOPRAM OXALATE
  6. SUCRALFATE. [Concomitant]
     Active Substance: SUCRALFATE
  7. COREG CR [Concomitant]
     Active Substance: CARVEDILOL PHOSPHATE
  8. VITAMINS [Concomitant]
     Active Substance: VITAMINS
  9. OPANA [Suspect]
     Active Substance: OXYMORPHONE HYDROCHLORIDE
  10. IBUPROFEN. [Concomitant]
     Active Substance: IBUPROFEN
  11. VITAMIN D [Concomitant]
     Active Substance: CHOLECALCIFEROL
  12. PREMARIN [Concomitant]
     Active Substance: ESTROGENS, CONJUGATED

REACTIONS (10)
  - Mobility decreased [None]
  - Drug ineffective [None]
  - Somnolence [None]
  - Hypotension [None]
  - Dry mouth [None]
  - Fall [None]
  - Visual impairment [None]
  - Pain [None]
  - Increased appetite [None]
  - Diarrhoea [None]

NARRATIVE: CASE EVENT DATE: 201505
